FAERS Safety Report 12136827 (Version 1)
Quarter: 2016Q1

REPORT INFORMATION
  Report Type: Spontaneous
  Country: CN (occurrence: CN)
  Receive Date: 20160302
  Receipt Date: 20160302
  Transmission Date: 20160526
  Serious: Yes (Hospitalization)
  Sender: FDA-Public Use
  Company Number: CN-ELI_LILLY_AND_COMPANY-CN201602007424

PATIENT
  Age: 45 Year
  Sex: Female
  Weight: 95 kg

DRUGS (5)
  1. HUMALOG [Suspect]
     Active Substance: INSULIN LISPRO
     Indication: DIABETES MELLITUS
     Dosage: 8 U, EACH MORNING
     Route: 058
     Dates: start: 2004
  2. HUMALOG [Suspect]
     Active Substance: INSULIN LISPRO
     Dosage: 12 U, EACH EVENING
     Route: 058
     Dates: start: 2004
  3. HUMALOG [Suspect]
     Active Substance: INSULIN LISPRO
     Dosage: 10 U, QD
     Route: 058
     Dates: start: 2004
  4. HUMULIN 70/30 [Suspect]
     Active Substance: INSULIN HUMAN
     Indication: DIABETES MELLITUS
     Dosage: 10 U, EACH EVENING
     Route: 058
     Dates: start: 2004
  5. MECOBALAMIN [Concomitant]
     Active Substance: METHYLCOBALAMIN
     Indication: PRODUCT USED FOR UNKNOWN INDICATION
     Route: 065

REACTIONS (4)
  - Neuropathy peripheral [Unknown]
  - Incorrect dose administered [Unknown]
  - Ketosis [Unknown]
  - Drug dose omission [Unknown]

NARRATIVE: CASE EVENT DATE: 201602
